FAERS Safety Report 16984563 (Version 10)
Quarter: 2020Q4

REPORT INFORMATION
  Report Type: Spontaneous
  Country: US (occurrence: US)
  Receive Date: 20191101
  Receipt Date: 20201126
  Transmission Date: 20210113
  Serious: No
  Sender: FDA-Public Use
  Company Number: US-PFIZER INC-2019470887

PATIENT
  Age: 44 Year
  Sex: Female
  Weight: 72 kg

DRUGS (5)
  1. LYRICA [Suspect]
     Active Substance: PREGABALIN
     Indication: PAIN IN EXTREMITY
     Dosage: 275 MG, 1X/DAY AT BEDTIME
  2. LYRICA [Suspect]
     Active Substance: PREGABALIN
     Indication: PARAESTHESIA
     Dosage: 150 MG, 1X/DAY AT BEDTIME
  3. LYRICA [Suspect]
     Active Substance: PREGABALIN
     Dosage: 100 MG, 1X/DAY (1 CAPSULE AT BED TIME)
     Route: 048
  4. LYRICA [Suspect]
     Active Substance: PREGABALIN
     Dosage: 425MG, DAILY (275 MG CAPSULES AND 150 MG TAKEN TOGETHER AT BEDTIME)
     Dates: start: 1992
  5. LYRICA [Suspect]
     Active Substance: PREGABALIN
     Dosage: 150 MG, 1X/DAY (IN THE EVENING)
     Route: 048

REACTIONS (5)
  - Off label use [Unknown]
  - Amputation stump pain [Unknown]
  - Drug effective for unapproved indication [Unknown]
  - Nasopharyngitis [Recovered/Resolved]
  - Neuralgia [Not Recovered/Not Resolved]

NARRATIVE: CASE EVENT DATE: 1992
